FAERS Safety Report 8476421-7 (Version None)
Quarter: 2012Q2

REPORT INFORMATION
  Report Type: 
  Country: None (occurrence: None)
  Receive Date: 20120628
  Receipt Date: 20120625
  Transmission Date: 20120825
  Serious: Yes (Death)
  Sender: FDA-Public Use
  Company Number: PHHY2012BR055016

PATIENT
  Sex: Male
  Weight: 68 kg

DRUGS (2)
  1. EXELON [Concomitant]
     Indication: DEMENTIA ALZHEIMER'S TYPE
     Dates: start: 20080901, end: 20100301
  2. RISPERIDONE [Suspect]
     Route: 048

REACTIONS (1)
  - DEATH [None]
